FAERS Safety Report 5170450-7 (Version None)
Quarter: 2006Q4

REPORT INFORMATION
  Report Type: 
  Country: None (occurrence: None)
  Receive Date: 20061212
  Receipt Date: 20061206
  Transmission Date: 20070319
  Serious: Yes (Other)
  Sender: FDA-Public Use
  Company Number: IT-ROXANE LABORATORIES, INC-2006-BP-14190RO

PATIENT
  Age: 80 Year
  Sex: Female

DRUGS (6)
  1. PREDNISONE TAB [Suspect]
     Indication: MULTIPLE MYELOMA
     Route: 048
  2. CYCLOPHOSPHAMIDE [Suspect]
     Indication: MULTIPLE MYELOMA
     Route: 042
  3. DEXAMETHASONE [Suspect]
     Indication: MULTIPLE MYELOMA
     Route: 042
  4. MELPHALAN [Suspect]
     Indication: MULTIPLE MYELOMA
     Route: 048
  5. PAMIDRONATE DISODIUM [Suspect]
     Indication: PROPHYLAXIS
     Route: 042
  6. ORAL HYPOGLYCEMIC [Concomitant]
     Indication: DIABETES MELLITUS

REACTIONS (3)
  - ACTINOMYCOSIS [None]
  - OSTEOMYELITIS [None]
  - OSTEONECROSIS [None]
